FAERS Safety Report 17783729 (Version 1)
Quarter: 2020Q2

REPORT INFORMATION
  Report Type: Spontaneous
  Country: US (occurrence: US)
  Receive Date: 20200514
  Receipt Date: 20200514
  Transmission Date: 20200714
  Serious: Yes (Hospitalization, Congenital Anomaly)
  Sender: FDA-Public Use
  Company Number: US-CELLTRION-2020-US-009373

PATIENT
  Sex: 0

DRUGS (2)
  1. BRIVARACETAM [Suspect]
     Active Substance: BRIVARACETAM
     Indication: FOETAL EXPOSURE DURING PREGNANCY
     Route: 015
  2. DIVALPROEX (DIVALPROEX SODIUM) [Suspect]
     Active Substance: DIVALPROEX SODIUM
     Indication: FOETAL EXPOSURE DURING PREGNANCY
     Route: 015

REACTIONS (2)
  - Foetal exposure during pregnancy [Recovered/Resolved]
  - Haemangioma congenital [Not Recovered/Not Resolved]
